FAERS Safety Report 5507684-5 (Version None)
Quarter: 2007Q4

REPORT INFORMATION
  Report Type: 
  Country: None (occurrence: None)
  Receive Date: 20071106
  Receipt Date: 20071031
  Transmission Date: 20080405
  Serious: Yes (Hospitalization)
  Sender: FDA-Public Use
  Company Number: B0485967A

PATIENT
  Age: 68 Year
  Sex: Male

DRUGS (1)
  1. ZOVIRAX [Suspect]
     Indication: HERPES ZOSTER
     Dosage: 200MG VARIABLE DOSE
     Route: 048
     Dates: start: 20070828, end: 20070903

REACTIONS (2)
  - DELIRIUM [None]
  - DYSLALIA [None]
